FAERS Safety Report 5929421-2 (Version None)
Quarter: 2008Q4

REPORT INFORMATION
  Report Type: 
  Country: None (occurrence: None)
  Receive Date: 20081024
  Receipt Date: 20081016
  Transmission Date: 20090506
  Serious: Yes (Hospitalization)
  Sender: FDA-Public Use
  Company Number: FR-ABBOTT-08P-056-0482714-00

PATIENT
  Age: 51 Year
  Sex: Male

DRUGS (3)
  1. KALETRA [Suspect]
     Indication: HIV INFECTION
     Route: 048
     Dates: start: 20050722
  2. LAMIVUDINE + ZIDOVUDINE [Suspect]
     Indication: HIV INFECTION
     Dosage: 150/300 MG
     Route: 048
     Dates: start: 20080722
  3. BACTRIM [Suspect]
     Indication: HIV INFECTION
     Route: 048
     Dates: end: 20080701

REACTIONS (1)
  - PORPHYRIA NON-ACUTE [None]
